FAERS Safety Report 4583023-1 (Version None)
Quarter: 2005Q1

REPORT INFORMATION
  Report Type: 
  Country: None (occurrence: None)
  Receive Date: 20050125
  Receipt Date: 20041028
  Transmission Date: 20050727
  Serious: No
  Sender: FDA-Public Use
  Company Number: USA040979432

PATIENT
  Age: 90 Year
  Sex: Female

DRUGS (3)
  1. HUMALOG [Suspect]
     Dates: start: 20020101
  2. HUMULIN N [Suspect]
     Dates: start: 19840101
  3. FORTEO [Suspect]
     Dates: start: 20040701

REACTIONS (2)
  - BLOOD GLUCOSE DECREASED [None]
  - DRUG INTERACTION [None]
